FAERS Safety Report 4959696-8 (Version None)
Quarter: 2006Q1

REPORT INFORMATION
  Report Type: 
  Country: None (occurrence: None)
  Receive Date: 20060331
  Receipt Date: 20060323
  Transmission Date: 20060701
  Serious: Yes (Disabling)
  Sender: FDA-Public Use
  Company Number: US-BRISTOL-MYERS SQUIBB COMPANY-13325261

PATIENT
  Age: 59 Year
  Sex: Male
  Weight: 97 kg

DRUGS (11)
  1. CETUXIMAB [Suspect]
     Indication: SQUAMOUS CELL CARCINOMA
     Route: 042
     Dates: start: 20060315, end: 20060315
  2. CISPLATIN [Suspect]
     Indication: SQUAMOUS CELL CARCINOMA
     Route: 042
     Dates: start: 20060315, end: 20060315
  3. RADIATION THERAPY [Suspect]
     Indication: SQUAMOUS CELL CARCINOMA
     Dosage: ADM WEEK 2-7:60 GY(2GY/DAY)/TOTAL DOSE ADM TO DATE:3800CGY/# OF FRACTIONS:19/# OF ELAPSED DAYS: 29
     Dates: start: 20060320, end: 20060320
  4. AQUAPHOR [Concomitant]
  5. COLACE [Concomitant]
  6. DURAGESIC-100 [Concomitant]
  7. HYDROCODONE TARTRATE [Concomitant]
  8. MAGIC MOUTHWASH [Concomitant]
  9. NYSTATIN [Concomitant]
  10. CLEOCIN GEL [Concomitant]
  11. FLUORIDE [Concomitant]

REACTIONS (4)
  - ANOREXIA [None]
  - DERMATITIS ACNEIFORM [None]
  - MUCOSAL INFLAMMATION [None]
  - RADIATION SKIN INJURY [None]
